FAERS Safety Report 4480382-5 (Version None)
Quarter: 2004Q4

REPORT INFORMATION
  Report Type: 
  Country: None (occurrence: None)
  Receive Date: 20041018
  Receipt Date: 20040930
  Transmission Date: 20050328
  Serious: Yes (Other)
  Sender: FDA-Public Use
  Company Number: 2004IC000549

PATIENT
  Age: 75 Year
  Sex: Male

DRUGS (6)
  1. FLUOROURACIL [Suspect]
     Indication: COLORECTAL CANCER METASTATIC
     Dosage: 400 + 3000 MG/M**2; UNKNOWN; INTRAVENOUS BOLUS
     Route: 040
     Dates: end: 19991117
  2. FLUOROURACIL [Suspect]
     Indication: COLORECTAL CANCER METASTATIC
     Dosage: 400 + 3000 MG/M**2; UNKNOWN; INTRAVENOUS BOLUS
     Route: 040
     Dates: start: 19991117
  3. LEUCOVORIN CALCIUM [Suspect]
     Indication: COLORECTAL CANCER METASTATIC
     Dosage: 150 MG/M**2; UNKNOWN; INTRAVENOUS
     Route: 042
  4. ELOXATIN [Concomitant]
  5. FARLUTAL [Concomitant]
  6. GLYBURIDE [Concomitant]

REACTIONS (6)
  - COMA [None]
  - HEPATIC ENCEPHALOPATHY [None]
  - HEPATOTOXICITY [None]
  - HYPERAMMONAEMIA [None]
  - INFUSION RELATED REACTION [None]
  - STUPOR [None]
